FAERS Safety Report 8843865 (Version 1)
Quarter: 2012Q4

REPORT INFORMATION
  Report Type: 
  Country: US (occurrence: US)
  Receive Date: 20121016
  Receipt Date: 20121016
  Transmission Date: 20130627
  Serious: Yes (Hospitalization, Other)
  Sender: FDA-Public Use
  Company Number: US-009507513-2009SP033713

PATIENT
  Age: 26 None
  Sex: Female
  Weight: 81.65 kg

DRUGS (8)
  1. NUVARING [Suspect]
     Indication: CONTRACEPTION
     Dates: start: 20041206, end: 2005
  2. NUVARING [Suspect]
     Dates: start: 20050430
  3. NUVARING [Suspect]
     Dates: start: 20070813
  4. ORTHO TRI CYCLEN [Suspect]
     Indication: CONTRACEPTION
     Dates: start: 20060118
  5. LO/OVRAL [Suspect]
     Indication: PRODUCT USED FOR UNKNOWN INDICATION
     Dates: start: 20060411
  6. IBUPROFEN [Concomitant]
     Indication: PRODUCT USED FOR UNKNOWN INDICATION
  7. LOPRESSOR [Concomitant]
     Indication: PRODUCT USED FOR UNKNOWN INDICATION
  8. LORTAB [Concomitant]
     Indication: PRODUCT USED FOR UNKNOWN INDICATION
     Dosage: UNK UNK, PRN

REACTIONS (19)
  - Pulmonary embolism [Recovered/Resolved with Sequelae]
  - Pneumonia [Unknown]
  - Nephrolithiasis [Unknown]
  - Hydronephrosis [Unknown]
  - Deep vein thrombosis [Recovered/Resolved]
  - Pelvic pain [Unknown]
  - Menorrhagia [Unknown]
  - Chest pain [Unknown]
  - Insomnia [Unknown]
  - Anxiety [Recovered/Resolved]
  - Pelvic inflammatory disease [Unknown]
  - Unintended pregnancy [Unknown]
  - Back pain [Unknown]
  - Vaginal haemorrhage [Unknown]
  - Congestive cardiomyopathy [Not Recovered/Not Resolved]
  - Chest pain [Recovered/Resolved]
  - Major depression [Unknown]
  - Borderline personality disorder [Unknown]
  - Family stress [Unknown]
